FAERS Safety Report 21515545 (Version 1)
Quarter: 2022Q4

REPORT INFORMATION
  Report Type: Spontaneous
  Country: US (occurrence: None)
  Receive Date: 20221027
  Receipt Date: 20221027
  Transmission Date: 20230113
  Serious: Yes (Other)
  Sender: FDA-Public Use
  Company Number: None

PATIENT
  Age: 80 Year
  Sex: Female
  Weight: 94.5 kg

DRUGS (4)
  1. XOLAIR [Suspect]
     Active Substance: OMALIZUMAB
     Indication: Multiple allergies
     Dates: start: 20220510, end: 20220510
  2. insulin:  novolog [Concomitant]
  3. insulin:  lantus [Concomitant]
  4. insulin:  synthroid [Concomitant]

REACTIONS (3)
  - Arthralgia [None]
  - Erythema [None]
  - Swelling [None]

NARRATIVE: CASE EVENT DATE: 20220510
